FAERS Safety Report 19170605 (Version 1)
Quarter: 2021Q2

REPORT INFORMATION
  Report Type: Spontaneous
  Country: US (occurrence: US)
  Receive Date: 20210422
  Receipt Date: 20210422
  Transmission Date: 20210717
  Serious: Yes (Hospitalization, Other)
  Sender: FDA-Public Use
  Company Number: US-LUNDBECK-DKLU3031874

PATIENT
  Age: 4 Year
  Sex: Male
  Weight: 17.1 kg

DRUGS (2)
  1. SABRIL [Suspect]
     Active Substance: VIGABATRIN
     Indication: INFANTILE SPASMS
     Route: 048
  2. SABRIL [Suspect]
     Active Substance: VIGABATRIN
     Indication: IDIOPATHIC GENERALISED EPILEPSY

REACTIONS (4)
  - Seizure [Recovered/Resolved]
  - Vomiting [Unknown]
  - Diabetes mellitus [Unknown]
  - Blood sodium decreased [Unknown]
